FAERS Safety Report 25715425 (Version 1)
Quarter: 2025Q3

REPORT INFORMATION
  Report Type: Spontaneous
  Country: RU (occurrence: RU)
  Receive Date: 20250822
  Receipt Date: 20250822
  Transmission Date: 20251021
  Serious: Yes (Other)
  Sender: SANDOZ
  Company Number: None

PATIENT
  Sex: Female
  Weight: 43.7 kg

DRUGS (1)
  1. METHOTREXATE [Suspect]
     Active Substance: METHOTREXATE
     Indication: Arthritis
     Route: 030
     Dates: start: 20250801, end: 20250801

REACTIONS (2)
  - Arthritis [Not Recovered/Not Resolved]
  - Somnolence [Not Recovered/Not Resolved]

NARRATIVE: CASE EVENT DATE: 20250801
